FAERS Safety Report 14638445 (Version 2)
Quarter: 2018Q1

REPORT INFORMATION
  Report Type: Report from Study
  Country: US (occurrence: BR)
  Receive Date: 20180314
  Receipt Date: 20180327
  Transmission Date: 20180509
  Serious: Yes (Life-Threatening, Hospitalization, Other)
  Sender: FDA-Public Use
  Company Number: US-SUNOVION-2017000011

PATIENT

DRUGS (6)
  1. INDACATEROL [Suspect]
     Active Substance: INDACATEROL
     Indication: CHRONIC OBSTRUCTIVE PULMONARY DISEASE
     Dosage: 150 MG, QD
     Route: 055
  2. BROMAZEPAM [Concomitant]
     Active Substance: BROMAZEPAM
     Dosage: 6 MG, UNK
  3. AEROLIN [Concomitant]
     Active Substance: ALBUTEROL
     Dosage: 100 ?G, UNK
  4. FORASEQ [Suspect]
     Active Substance: BUDESONIDE\FORMOTEROL FUMARATE
     Indication: CHRONIC OBSTRUCTIVE PULMONARY DISEASE
     Dosage: 1 DF (400 UG OF BUDESONIDE/12 UG OF FORMOTEROL FUMARATE), BID
     Route: 055
  5. ATROVENT [Concomitant]
     Active Substance: IPRATROPIUM BROMIDE
     Dosage: 20 ML, UNK
  6. BEROTEC [Concomitant]
     Active Substance: FENOTEROL HYDROBROMIDE
     Dosage: 5 MG, UNK

REACTIONS (14)
  - Dyspnoea [Not Recovered/Not Resolved]
  - Emphysema [Unknown]
  - Dizziness [Unknown]
  - Fatigue [Not Recovered/Not Resolved]
  - Increased bronchial secretion [Unknown]
  - Malaise [Unknown]
  - Pulmonary function test decreased [Unknown]
  - Feeling abnormal [Unknown]
  - Bronchitis [Unknown]
  - Speech disorder [Unknown]
  - General physical health deterioration [Unknown]
  - Gait disturbance [Unknown]
  - Memory impairment [Unknown]
  - Disturbance in attention [Unknown]
